FAERS Safety Report 14650278 (Version 24)
Quarter: 2019Q2

REPORT INFORMATION
  Report Type: Report from Study
  Country: IL (occurrence: IL)
  Receive Date: 20180316
  Receipt Date: 20190401
  Transmission Date: 20190711
  Serious: Yes (Hospitalization, Other)
  Sender: FDA-Public Use
  Company Number: PHHY2018IL041696

PATIENT
  Age: 34 Year
  Sex: Female
  Weight: 114 kg

DRUGS (7)
  1. REVOLADE [Suspect]
     Active Substance: ELTROMBOPAG
     Dosage: 75MG/50MG ALTERNATELY, QD
     Route: 048
     Dates: end: 20180725
  2. REVOLADE [Suspect]
     Active Substance: ELTROMBOPAG
     Dosage: 25 MG, QD
     Route: 048
     Dates: start: 20181226
  3. REVOLADE [Suspect]
     Active Substance: ELTROMBOPAG
     Dosage: 50 MG, QD
     Route: 048
     Dates: start: 20180327
  4. REVOLADE [Suspect]
     Active Substance: ELTROMBOPAG
     Dosage: 75 MG, QD
     Route: 048
     Dates: start: 20180413
  5. REVOLADE [Suspect]
     Active Substance: ELTROMBOPAG
     Indication: IMMUNE THROMBOCYTOPENIC PURPURA
     Dosage: 75 MG, QD
     Route: 048
     Dates: start: 20160601
  6. REVOLADE [Suspect]
     Active Substance: ELTROMBOPAG
     Dosage: 100 MG, QD
     Route: 048
  7. REVOLADE [Suspect]
     Active Substance: ELTROMBOPAG
     Dosage: 50 MG, QD
     Route: 048
     Dates: start: 20180725, end: 20181225

REACTIONS (52)
  - Eye oedema [Not Recovered/Not Resolved]
  - Menorrhagia [Not Recovered/Not Resolved]
  - Musculoskeletal pain [Not Recovered/Not Resolved]
  - Asthenia [Not Recovered/Not Resolved]
  - Vomiting [Recovering/Resolving]
  - Helicobacter test positive [Not Recovered/Not Resolved]
  - Vomiting [Recovered/Resolved]
  - Abdominal pain [Recovered/Resolved]
  - Weight decreased [Unknown]
  - Inflammation [Recovering/Resolving]
  - Dysgeusia [Recovering/Resolving]
  - Bronchitis [Recovered/Resolved]
  - Pyrexia [Recovered/Resolved]
  - Helicobacter test positive [Recovered/Resolved]
  - Hypersensitivity [Unknown]
  - Pyrexia [Recovered/Resolved]
  - Intracranial pressure increased [Not Recovered/Not Resolved]
  - Back pain [Not Recovered/Not Resolved]
  - Headache [Not Recovered/Not Resolved]
  - Lymphadenopathy [Not Recovered/Not Resolved]
  - Blood lactate dehydrogenase increased [Recovering/Resolving]
  - Fatigue [Not Recovered/Not Resolved]
  - Balance disorder [Unknown]
  - Platelet count abnormal [Recovered/Resolved]
  - Decreased appetite [Not Recovered/Not Resolved]
  - Loss of consciousness [Recovered/Resolved]
  - Neck pain [Not Recovered/Not Resolved]
  - Platelet count decreased [Recovered/Resolved]
  - Blood thyroid stimulating hormone decreased [Not Recovered/Not Resolved]
  - Platelet count decreased [Recovered/Resolved]
  - Abdominal pain upper [Unknown]
  - Diarrhoea [Not Recovered/Not Resolved]
  - Platelet count decreased [Recovered/Resolved]
  - Influenza [Recovering/Resolving]
  - Sensory disturbance [Not Recovered/Not Resolved]
  - Inner ear disorder [Unknown]
  - Blood immunoglobulin G decreased [Unknown]
  - Alopecia [Not Recovered/Not Resolved]
  - Haemoglobin decreased [Recovering/Resolving]
  - Pain [Not Recovered/Not Resolved]
  - Dizziness [Not Recovered/Not Resolved]
  - Platelet count decreased [Not Recovered/Not Resolved]
  - Dry eye [Not Recovered/Not Resolved]
  - Serum ferritin decreased [Unknown]
  - Myalgia [Not Recovered/Not Resolved]
  - Overdose [Unknown]
  - Contusion [Not Recovered/Not Resolved]
  - Petechiae [Not Recovered/Not Resolved]
  - Pruritus [Unknown]
  - Fall [Recovered/Resolved]
  - Headache [Recovered/Resolved]
  - Oropharyngeal pain [Recovered/Resolved]

NARRATIVE: CASE EVENT DATE: 201703
